FAERS Safety Report 13166872 (Version 1)
Quarter: 2017Q1

REPORT INFORMATION
  Report Type: Spontaneous
  Country: US (occurrence: US)
  Receive Date: 20170127
  Receipt Date: 20170127
  Transmission Date: 20170428
  Serious: Yes (Hospitalization)
  Sender: FDA-Public Use
  Company Number: None

PATIENT
  Age: 64 Year
  Sex: Male
  Weight: 90.3 kg

DRUGS (1)
  1. MELOXICAM. [Suspect]
     Active Substance: MELOXICAM
     Indication: PAIN
     Route: 048
     Dates: start: 20120808, end: 20170124

REACTIONS (3)
  - Gastric ulcer [None]
  - Gastritis haemorrhagic [None]
  - Ulcer haemorrhage [None]

NARRATIVE: CASE EVENT DATE: 20170124
